FAERS Safety Report 6358856-1 (Version None)
Quarter: 2009Q3

REPORT INFORMATION
  Report Type: 
  Country: None (occurrence: None)
  Receive Date: 20090916
  Receipt Date: 20090910
  Transmission Date: 20100115
  Serious: No
  Sender: FDA-Public Use
  Company Number: US-ABBOTT-09P-163-0596840-00

PATIENT
  Sex: Female
  Weight: 79.45 kg

DRUGS (7)
  1. TRILIPIX [Suspect]
     Indication: BLOOD CHOLESTEROL INCREASED
     Dates: start: 20090601, end: 20090904
  2. TRILIPIX [Suspect]
     Indication: HEPATIC STEATOSIS
  3. LEXAPRO [Concomitant]
     Indication: DEPRESSION
     Dosage: UNKNOWN
  4. LEXAPRO [Concomitant]
     Indication: ANXIETY
  5. LORAZEPAM [Concomitant]
     Indication: DEPRESSION
     Dosage: UNKNOWN
  6. LORAZEPAM [Concomitant]
     Indication: ANXIETY
  7. BONIVA [Concomitant]
     Indication: OSTEOPOROSIS
     Dosage: UNKNOWN
     Dates: start: 20090301

REACTIONS (3)
  - FATIGUE [None]
  - NERVOUSNESS [None]
  - PAIN [None]
